FAERS Safety Report 18607330 (Version 10)
Quarter: 2021Q2

REPORT INFORMATION
  Report Type: Spontaneous
  Country: US (occurrence: US)
  Receive Date: 20201211
  Receipt Date: 20210510
  Transmission Date: 20210717
  Serious: Yes (Congenital Anomaly, Other)
  Sender: FDA-Public Use
  Company Number: NVSC2020US326807

PATIENT
  Sex: Female

DRUGS (2)
  1. ZOFRAN [Suspect]
     Active Substance: ONDANSETRON HYDROCHLORIDE
     Indication: FOETAL EXPOSURE DURING PREGNANCY
     Dosage: MOTHER DOSE: 4MG, UNK
     Route: 064
  2. ONDANSETRON [Suspect]
     Active Substance: ONDANSETRON
     Indication: FOETAL EXPOSURE DURING PREGNANCY
     Dosage: MOTHER DOSE: 4 MG, PRN
     Route: 064

REACTIONS (65)
  - Pulmonary artery stenosis congenital [Unknown]
  - Fatigue [Unknown]
  - Flatulence [Unknown]
  - Cystitis [Unknown]
  - Left ventricular hypertrophy [Unknown]
  - Ventricular septal defect [Unknown]
  - Syncope [Unknown]
  - Injury [Unknown]
  - Seasonal allergy [Unknown]
  - Erythema [Unknown]
  - Oral pain [Unknown]
  - Urinary tract infection [Unknown]
  - Dysuria [Unknown]
  - Asthma [Unknown]
  - Heart disease congenital [Unknown]
  - Left-to-right cardiac shunt [Unknown]
  - Congenital tricuspid valve incompetence [Unknown]
  - Cough [Unknown]
  - Sinusitis [Unknown]
  - Insomnia [Unknown]
  - Corrected transposition of great vessels [Unknown]
  - Dextrocardia [Unknown]
  - Intestinal malrotation [Unknown]
  - Cephalhaematoma [Unknown]
  - Chest pain [Unknown]
  - Hypertension [Unknown]
  - Otitis media acute [Unknown]
  - Wheezing [Unknown]
  - Right ventricular hypertrophy [Unknown]
  - Atrial septal defect [Unknown]
  - Pulmonary artery dilatation [Unknown]
  - Tonsillitis streptococcal [Unknown]
  - QRS axis abnormal [Unknown]
  - Tachycardia [Unknown]
  - Periorbital swelling [Unknown]
  - Tongue coated [Unknown]
  - Bronchitis [Unknown]
  - Enuresis [Unknown]
  - Right-to-left cardiac shunt [Unknown]
  - Pulmonary valve incompetence [Unknown]
  - Foetal exposure during pregnancy [Unknown]
  - Vomiting [Unknown]
  - Nasal congestion [Unknown]
  - Stridor [Unknown]
  - Dyspnoea [Unknown]
  - Breast discharge [Unknown]
  - Restlessness [Unknown]
  - Tonsillar hypertrophy [Unknown]
  - Ear discomfort [Unknown]
  - Upper respiratory tract infection [Unknown]
  - Apnoea [Unknown]
  - Cardiac murmur [Unknown]
  - Pyrexia [Unknown]
  - Oropharyngeal pain [Unknown]
  - Adenoidal hypertrophy [Unknown]
  - Snoring [Unknown]
  - Dysphagia [Unknown]
  - Pharyngitis streptococcal [Unknown]
  - Tonsillitis [Unknown]
  - Lymphadenopathy [Unknown]
  - Umbilical hernia [Unknown]
  - Constipation [Unknown]
  - Ear pain [Unknown]
  - Rash [Unknown]
  - Urticaria [Unknown]
